FAERS Safety Report 5643466-1 (Version None)
Quarter: 2008Q1

REPORT INFORMATION
  Report Type: 
  Country: None (occurrence: None)
  Receive Date: 20080131
  Receipt Date: 20071117
  Transmission Date: 20080703
  Serious: Yes (Hospitalization)
  Sender: FDA-Public Use
  Company Number: 163-21880-07111095

PATIENT
  Age: 64 Year
  Sex: Male
  Weight: 93.8 kg

DRUGS (5)
  1. REVLIMID\PLACEBO (CAPSULES) [Suspect]
     Indication: MULTIPLE MYELOMA
     Dosage: 15 MG, QD, ORAL ; 10 MG, QD, ORAL
     Route: 048
     Dates: start: 20070912
  2. ANTIBIOTICS (ANTIBIOTICS) [Concomitant]
  3. ACETAMINOPHEN [Concomitant]
  4. MORPHINE [Concomitant]
  5. OXYCODONE HCL [Concomitant]

REACTIONS (2)
  - BACK PAIN [None]
  - BRONCHITIS [None]
